FAERS Safety Report 4912608-5 (Version None)
Quarter: 2006Q1

REPORT INFORMATION
  Report Type: 
  Country: None (occurrence: None)
  Receive Date: 20060215
  Receipt Date: 20050225
  Transmission Date: 20060701
  Serious: Yes (Hospitalization, Disabling)
  Sender: FDA-Public Use
  Company Number: US-MERCK-0503USA00095

PATIENT
  Age: 44 Year
  Sex: Male
  Weight: 75 kg

DRUGS (1)
  1. VIOXX [Suspect]
     Indication: BURSITIS
     Route: 048
     Dates: start: 20020901, end: 20030101

REACTIONS (4)
  - ACUTE MYOCARDIAL INFARCTION [None]
  - CHEST PAIN [None]
  - GRANULOMA SKIN [None]
  - RENAL IMPAIRMENT [None]
